FAERS Safety Report 7344446-0 (Version None)
Quarter: 2011Q1

REPORT INFORMATION
  Report Type: 
  Country: None (occurrence: None)
  Receive Date: 20110310
  Receipt Date: 20110207
  Transmission Date: 20110831
  Serious: No
  Sender: FDA-Public Use
  Company Number: A0912380A

PATIENT
  Age: 67 Year
  Sex: Female

DRUGS (1)
  1. NICORETTE (MINT) [Suspect]
     Indication: SMOKING CESSATION THERAPY
     Dosage: 1LOZ IN THE MORNING

REACTIONS (2)
  - THERMAL BURN [None]
  - OROPHARYNGEAL DISCOMFORT [None]
